FAERS Safety Report 12079356 (Version 1)
Quarter: 2016Q1

REPORT INFORMATION
  Report Type: Spontaneous
  Country: US (occurrence: None)
  Receive Date: 20160212
  Receipt Date: 20160212
  Transmission Date: 20160526
  Serious: Yes (Death)
  Sender: FDA-Public Use
  Company Number: None

PATIENT
  Age: 43 Year
  Sex: Male
  Weight: 136.08 kg

DRUGS (3)
  1. ANDROGEL [Concomitant]
     Active Substance: TESTOSTERONE
  2. NUVIGIL [Suspect]
     Active Substance: ARMODAFINIL
     Indication: SOMNOLENCE
     Dosage: 1 TABLET DAILY
     Route: 048
     Dates: start: 20150914, end: 20160107
  3. NUVIGIL [Concomitant]
     Active Substance: ARMODAFINIL

REACTIONS (9)
  - Seizure [None]
  - Unresponsive to stimuli [None]
  - Wheezing [None]
  - Tremor [None]
  - Pulse abnormal [None]
  - Middle insomnia [None]
  - Chest pain [None]
  - Fall [None]
  - Diarrhoea [None]

NARRATIVE: CASE EVENT DATE: 20160107
